FAERS Safety Report 13186677 (Version 2)
Quarter: 2017Q1

REPORT INFORMATION
  Report Type: Report from Study
  Country: None (occurrence: US)
  Receive Date: 20170205
  Receipt Date: 20170316
  Transmission Date: 20170428
  Serious: Yes (Hospitalization)
  Sender: FDA-Public Use
  Company Number: US-ABBVIE-17K-163-1855925-00

PATIENT
  Age: 14 Year
  Sex: Female

DRUGS (1)
  1. HUMIRA [Suspect]
     Active Substance: ADALIMUMAB
     Indication: CROHN^S DISEASE
     Route: 058
     Dates: end: 201701

REACTIONS (3)
  - Perirectal abscess [Recovering/Resolving]
  - Dermal cyst [Recovering/Resolving]
  - Perirectal abscess [Unknown]

NARRATIVE: CASE EVENT DATE: 201701
